FAERS Safety Report 10202975 (Version 1)
Quarter: 2014Q2

REPORT INFORMATION
  Report Type: Report from Study
  Country: US (occurrence: US)
  Receive Date: 20140528
  Receipt Date: 20140528
  Transmission Date: 20141212
  Serious: Yes (Other)
  Sender: FDA-Public Use
  Company Number: PHEH2014US010721

PATIENT
  Sex: Male

DRUGS (25)
  1. MYFORTIC [Suspect]
     Indication: RENAL TRANSPLANT
     Dosage: 360 MG, BID
     Route: 048
  2. ESOMEPRAZOLE [Concomitant]
     Dosage: UNK UKN, UNK
  3. PREDNISONE [Concomitant]
     Dosage: UNK UKN, UNK
  4. IMDUR [Concomitant]
     Dosage: UNK UKN, UNK
  5. HYDRALAZINE [Concomitant]
     Dosage: UNK UKN, UNK
  6. PRAVASTATIN [Concomitant]
     Dosage: UNK UKN, UNK
  7. TAMSULOSIN [Concomitant]
     Dosage: UNK UKN, UNK
  8. WARFARIN [Concomitant]
     Dosage: UNK UKN, UNK
  9. AMLODIPINE [Concomitant]
     Dosage: UNK UKN, UNK
  10. CLONIDINE [Concomitant]
     Dosage: UNK UKN, UNK
  11. INSULIN ASPART [Concomitant]
     Dosage: UNK UKN, UNK
  12. NEORAL [Concomitant]
     Dosage: UNK UKN, UNK
  13. CARVEDILOL [Concomitant]
     Dosage: UNK UKN, UNK
  14. SULFAMETHOXAZOLE [Concomitant]
     Dosage: UNK UKN, UNK
  15. DOCUSATE SODIUM [Concomitant]
     Dosage: UNK UKN, UNK
  16. VITAMIN E [Concomitant]
     Dosage: UNK UKN, UNK
  17. OMEGA 3 [Concomitant]
     Dosage: UNK UKN, UNK
  18. NITROSTAT [Concomitant]
     Dosage: UNK UKN, UNK
  19. ASCORBIC ACID [Concomitant]
     Dosage: UNK UKN, UNK
  20. CALCIUM + VITAMIN D [Concomitant]
     Dosage: UNK UKN, UNK
  21. MELATONIN [Concomitant]
     Dosage: UNK UKN, UNK
  22. INSULIN GLARGINE [Concomitant]
     Dosage: UNK UKN, UNK
  23. FLUOCINONIDE [Concomitant]
     Dosage: UNK UKN, UNK
  24. FUROSEMIDE [Concomitant]
     Dosage: UNK UKN, UNK
  25. CALCITRIOL [Concomitant]
     Dosage: UNK UKN, UNK

REACTIONS (22)
  - Large intestine polyp [Unknown]
  - Myocardial infarction [Unknown]
  - Chest pain [Unknown]
  - Cardiac failure congestive [Unknown]
  - Cataract [Unknown]
  - Generalised oedema [Unknown]
  - Neuropathy peripheral [Unknown]
  - Atrial flutter [Unknown]
  - Coronary artery disease [Unknown]
  - Palpitations [Unknown]
  - Renal failure chronic [Unknown]
  - Diabetes mellitus [Unknown]
  - Basal cell carcinoma [Unknown]
  - Melanocytic naevus [Unknown]
  - Nasal congestion [Unknown]
  - Seborrhoeic keratosis [Unknown]
  - Ingrowing nail [Unknown]
  - Onychomycosis [Unknown]
  - Hyperlipidaemia [Unknown]
  - Pain in extremity [Unknown]
  - Gastrooesophageal reflux disease [Unknown]
  - Hypertension [Unknown]
